FAERS Safety Report 12786831 (Version 8)
Quarter: 2017Q1

REPORT INFORMATION
  Report Type: Report from Study
  Country: AU (occurrence: AU)
  Receive Date: 20160928
  Receipt Date: 20170315
  Transmission Date: 20170428
  Serious: Yes (Hospitalization, Other)
  Sender: FDA-Public Use
  Company Number: AU-ALEXION PHARMACEUTICALS INC.-A201607178

PATIENT
  Age: 45 Year
  Sex: Male

DRUGS (2)
  1. SOLIRIS [Suspect]
     Active Substance: ECULIZUMAB
     Indication: HAEMOLYTIC URAEMIC SYNDROME
     Dosage: 900 MG, QW
     Route: 042
     Dates: start: 20160114, end: 20160204
  2. SOLIRIS [Suspect]
     Active Substance: ECULIZUMAB
     Dosage: 1200 MG, Q2W
     Route: 042
     Dates: start: 20160212, end: 20170105

REACTIONS (11)
  - Blood pressure increased [Recovering/Resolving]
  - Rash [Recovered/Resolved]
  - Nausea [Unknown]
  - Renal failure [Not Recovered/Not Resolved]
  - Dehydration [Unknown]
  - Headache [Recovered/Resolved]
  - Renal impairment [Recovering/Resolving]
  - Abdominal distension [Recovered/Resolved]
  - Headache [Recovered/Resolved]
  - Rhinorrhoea [Recovering/Resolving]
  - Vomiting [Recovered/Resolved]

NARRATIVE: CASE EVENT DATE: 20160915
